FAERS Safety Report 7707624-4 (Version None)
Quarter: 2011Q3

REPORT INFORMATION
  Report Type: 
  Country: None (occurrence: None)
  Receive Date: 20110824
  Receipt Date: 20110823
  Transmission Date: 20111222
  Serious: Yes (Death)
  Sender: FDA-Public Use
  Company Number: AU-B.I. PHARMACEUTICALS,INC./RIDGEFIELD-2011-AU-00749AU

PATIENT
  Sex: Male
  Weight: 75 kg

DRUGS (7)
  1. PERINDOPRIL ERBUMINE [Concomitant]
     Dosage: 5 MG
  2. FERRO TABS [Concomitant]
  3. TEMAZE [Concomitant]
  4. ZANTAC [Concomitant]
     Dosage: 300 MG
  5. PRADAXA [Suspect]
     Indication: ATRIAL FIBRILLATION
     Dosage: 220 MG
     Dates: start: 20110606
  6. LASIX [Concomitant]
     Dosage: 80 MG
  7. ASPIRIN [Concomitant]

REACTIONS (1)
  - DEATH [None]
